FAERS Safety Report 24267022 (Version 1)
Quarter: 2024Q3

REPORT INFORMATION
  Report Type: Spontaneous
  Country: US (occurrence: US)
  Receive Date: 20240830
  Receipt Date: 20240830
  Transmission Date: 20241016
  Serious: Yes (Hospitalization)
  Sender: BRISTOL MYERS SQUIBB
  Company Number: US-BRISTOL-MYERS SQUIBB COMPANY-2024-137665

PATIENT
  Age: 79 Year
  Sex: Female
  Weight: 63.5 kg

DRUGS (6)
  1. REVLIMID [Suspect]
     Active Substance: LENALIDOMIDE
     Indication: Plasma cell myeloma
     Dosage: 1 CAPSULE ONCE DAILY FOR 21 DAYS IN THEN 7 DAYS OFF
     Route: 048
     Dates: start: 20201001
  2. REVLIMID [Suspect]
     Active Substance: LENALIDOMIDE
     Indication: Plasma protein metabolism disorder
  3. DEXAMETHASONE [Concomitant]
     Active Substance: DEXAMETHASONE
     Indication: Plasma cell myeloma
     Dosage: ONCE WEEKLY
     Route: 048
     Dates: start: 20231023
  4. DEXAMETHASONE [Concomitant]
     Active Substance: DEXAMETHASONE
     Indication: Plasma protein metabolism disorder
  5. ACYCLOVIR [Concomitant]
     Active Substance: ACYCLOVIR
     Indication: Plasma cell myeloma
     Dosage: ONCE DAILY
     Route: 048
     Dates: start: 20240703
  6. ACYCLOVIR [Concomitant]
     Active Substance: ACYCLOVIR
     Indication: Plasma protein metabolism disorder

REACTIONS (1)
  - Cellulitis [Recovering/Resolving]

NARRATIVE: CASE EVENT DATE: 20240823
